FAERS Safety Report 17305916 (Version 1)
Quarter: 2020Q1

REPORT INFORMATION
  Report Type: Spontaneous
  Country: PT (occurrence: PT)
  Receive Date: 20200123
  Receipt Date: 20200123
  Transmission Date: 20200409
  Serious: Yes (Death, Hospitalization, Other)
  Sender: FDA-Public Use
  Company Number: PT-MYLANLABS-2020M1006517

PATIENT
  Age: 60 Year
  Sex: Male

DRUGS (1)
  1. AMIODARONE [Suspect]
     Active Substance: AMIODARONE
     Indication: PRODUCT USED FOR UNKNOWN INDICATION
     Dosage: UNK

REACTIONS (24)
  - Fatigue [Fatal]
  - Blood thyroid stimulating hormone increased [Fatal]
  - Neutrophilia [Fatal]
  - Hypothermia [Fatal]
  - Renal failure [Fatal]
  - Multiple organ dysfunction syndrome [Fatal]
  - Metabolic acidosis [Fatal]
  - Anaemia macrocytic [Fatal]
  - Leukocytosis [Fatal]
  - Hyperkalaemia [Fatal]
  - Depression [Fatal]
  - Acute kidney injury [Fatal]
  - Coma [Fatal]
  - Sinus bradycardia [Fatal]
  - Pleural effusion [Fatal]
  - Hyperlactacidaemia [Fatal]
  - Blood glucose increased [Fatal]
  - Impaired gastric emptying [Unknown]
  - Hypoxia [Fatal]
  - Myxoedema coma [Fatal]
  - Pericardial effusion [Fatal]
  - Hypothyroidism [Fatal]
  - Tri-iodothyronine free decreased [Fatal]
  - Hypotension [Fatal]
